FAERS Safety Report 7750280-X (Version None)
Quarter: 2011Q3

REPORT INFORMATION
  Report Type: 
  Country: None (occurrence: None)
  Receive Date: 20110914
  Receipt Date: 20110901
  Transmission Date: 20111222
  Serious: Yes (Other)
  Sender: FDA-Public Use
  Company Number: GB-ARROW GEN-2011-14090

PATIENT
  Age: 62 Year
  Sex: Female
  Weight: 57.8 kg

DRUGS (7)
  1. ELLESTE DUET [Concomitant]
     Indication: MENOPAUSE
     Dosage: 0.5 DF, DAILY
     Route: 048
  2. GLUCOSAMINE [Concomitant]
     Indication: PRODUCT USED FOR UNKNOWN INDICATION
     Dosage: UNK
     Route: 065
  3. ACETAMINOPHEN [Concomitant]
     Indication: PRODUCT USED FOR UNKNOWN INDICATION
     Dosage: AS NECESSARY
     Route: 065
  4. IBUPROFEN [Concomitant]
     Indication: PRODUCT USED FOR UNKNOWN INDICATION
     Dosage: AS NECESSARY
     Route: 065
  5. MELOXICAM [Suspect]
     Indication: ARTHRITIS
     Dosage: 3.75 MG, DAILY
     Route: 048
     Dates: start: 20100701, end: 20110101
  6. ELLESTE DUET [Concomitant]
     Indication: HORMONE REPLACEMENT THERAPY
     Dosage: 0.5 DF, DAILY
     Route: 048
  7. NARATRIPTAN [Concomitant]
     Indication: PRODUCT USED FOR UNKNOWN INDICATION
     Dosage: 2.5 MG, AS NECESSARY
     Route: 048

REACTIONS (6)
  - AMNESIA [None]
  - BALANCE DISORDER [None]
  - PERSONALITY CHANGE [None]
  - CONFUSIONAL STATE [None]
  - DISTURBANCE IN ATTENTION [None]
  - TINNITUS [None]
